FAERS Safety Report 8790742 (Version 1)
Quarter: 2012Q4

REPORT INFORMATION
  Report Type: Spontaneous
  Country: US (occurrence: None)
  Receive Date: 20120913
  Receipt Date: 20120913
  Transmission Date: 20130627
  Serious: Yes (Life-Threatening)
  Sender: FDA-Public Use
  Company Number: None

PATIENT
  Age: 23 Year
  Sex: Male
  Weight: 54 kg

DRUGS (5)
  1. DAPSONE [Suspect]
     Indication: PNEUMOCYSTIS CARINII PNEUMONIA
     Route: 048
  2. DAPSONE [Suspect]
     Indication: PROPHYLAXIS
     Route: 048
  3. TRUVADA [Concomitant]
  4. RITONAVIR [Concomitant]
  5. ATAZANAVIR [Concomitant]

REACTIONS (11)
  - Fatigue [None]
  - Chills [None]
  - Nausea [None]
  - Transaminases increased [None]
  - Coagulopathy [None]
  - Confusional state [None]
  - Aspiration [None]
  - Toxic epidermal necrolysis [None]
  - Renal failure [None]
  - Lymphadenopathy [None]
  - Lymphoma [None]
